FAERS Safety Report 7546379-3 (Version None)
Quarter: 2011Q2

REPORT INFORMATION
  Report Type: 
  Country: None (occurrence: None)
  Receive Date: 20110614
  Receipt Date: 20110611
  Transmission Date: 20111010
  Serious: Yes (Other)
  Sender: FDA-Public Use
  Company Number: US-PFIZER INC-2011127768

PATIENT
  Sex: Male
  Weight: 111 kg

DRUGS (1)
  1. VIAGRA [Suspect]
     Dosage: THREE PILLS OF 100MG
     Route: 048
     Dates: start: 20110611

REACTIONS (4)
  - PAINFUL ERECTION [None]
  - GENITAL PAIN [None]
  - INCORRECT DOSE ADMINISTERED [None]
  - GENITAL SWELLING [None]
